FAERS Safety Report 15744224 (Version 2)
Quarter: 2019Q2

REPORT INFORMATION
  Report Type: Report from Study
  Country: US (occurrence: US)
  Receive Date: 20181220
  Receipt Date: 20190527
  Transmission Date: 20190711
  Serious: Yes (Other)
  Sender: FDA-Public Use
  Company Number: US-EMD SERONO-9058930

PATIENT
  Age: 36 Year
  Sex: Female

DRUGS (1)
  1. REBIF [Suspect]
     Active Substance: INTERFERON BETA-1A
     Indication: MULTIPLE SCLEROSIS
     Route: 058
     Dates: start: 20180115

REACTIONS (4)
  - Chills [Unknown]
  - Fall [Unknown]
  - Paralysis [Unknown]
  - Feeling cold [Unknown]

NARRATIVE: CASE EVENT DATE: 201812
